FAERS Safety Report 23791399 (Version 1)
Quarter: 2024Q2

REPORT INFORMATION
  Report Type: Spontaneous
  Country: AU (occurrence: AU)
  Receive Date: 20240429
  Receipt Date: 20240429
  Transmission Date: 20240716
  Serious: Yes (Other)
  Sender: FDA-Public Use
  Company Number: AU-HALEON-AUCH2023051166

PATIENT
  Age: 6 Month

DRUGS (1)
  1. PANADOL [Suspect]
     Active Substance: ACETAMINOPHEN
     Indication: Immunisation
     Dosage: UNK ;EXPDATE:202407
     Dates: start: 202304, end: 202305

REACTIONS (3)
  - Choking [Unknown]
  - Product complaint [Unknown]
  - Emotional distress [Unknown]

NARRATIVE: CASE EVENT DATE: 20230101
